FAERS Safety Report 4741540-5 (Version None)
Quarter: 2005Q3

REPORT INFORMATION
  Report Type: 
  Country: None (occurrence: None)
  Receive Date: 20050808
  Receipt Date: 20050725
  Transmission Date: 20060218
  Serious: Yes (Hospitalization)
  Sender: FDA-Public Use
  Company Number: EWC050745151

PATIENT
  Age: 61 Year
  Sex: Male
  Weight: 56 kg

DRUGS (3)
  1. GEMCITABINE HYDROCHLORIDE-IV (GEMCITABINE) [Suspect]
     Indication: NON-SMALL CELL LUNG CANCER
     Dosage: 1000 MG/M2/2 OTHER
     Route: 050
     Dates: start: 20050816, end: 20050628
  2. CARBOPLATIN [Suspect]
     Indication: NON-SMALL CELL LUNG CANCER
     Dosage: 355 MG/M2/2
     Dates: start: 20050616, end: 20050617
  3. RIBONUCLEIC ACID [Concomitant]

REACTIONS (10)
  - ADENOMA BENIGN [None]
  - CANDIDIASIS [None]
  - HAEMOGLOBIN ABNORMAL [None]
  - INFECTION [None]
  - LUNG INFECTION [None]
  - LYMPHOCYTE COUNT DECREASED [None]
  - METASTASES TO PLEURA [None]
  - PLATELET COUNT DECREASED [None]
  - PLATELET COUNT INCREASED [None]
  - THERAPY NON-RESPONDER [None]
